FAERS Safety Report 22274377 (Version 1)
Quarter: 2023Q2

REPORT INFORMATION
  Report Type: Report from Study
  Country: MY (occurrence: MY)
  Receive Date: 20230502
  Receipt Date: 20230502
  Transmission Date: 20230722
  Serious: Yes (Other)
  Sender: FDA-Public Use
  Company Number: MY-SUN PHARMACEUTICAL INDUSTRIES LTD-2023R1-387104

PATIENT
  Age: 23 Year
  Sex: Male

DRUGS (4)
  1. AZITHROMYCIN [Suspect]
     Active Substance: AZITHROMYCIN
     Indication: Granuloma
     Dosage: UNK
     Route: 048
  2. AZITHROMYCIN [Suspect]
     Active Substance: AZITHROMYCIN
     Indication: Conjunctival defect
  3. BETAMETHASONE\NEOMYCIN [Suspect]
     Active Substance: BETAMETHASONE\NEOMYCIN
     Indication: Conjunctival defect
     Dosage: UNK
     Route: 061
  4. BETAMETHASONE\NEOMYCIN [Suspect]
     Active Substance: BETAMETHASONE\NEOMYCIN
     Indication: Granuloma

REACTIONS (2)
  - Therapy non-responder [Unknown]
  - Skin mass [Unknown]
